FAERS Safety Report 8334880 (Version 2)
Quarter: 2013Q4

REPORT INFORMATION
  Report Type: Spontaneous
  Country: VE (occurrence: VE)
  Receive Date: 20120112
  Receipt Date: 20131025
  Transmission Date: 20140711
  Serious: Yes (Other)
  Sender: FDA-Public Use
  Company Number: VE-GLAXOSMITHKLINE-A0961009A

PATIENT
  Sex: Female
  Weight: 75 kg

DRUGS (3)
  1. TYKERB [Suspect]
     Indication: BREAST CANCER METASTATIC
     Dosage: 1250MG PER DAY
     Route: 048
     Dates: start: 20100217, end: 20111205
  2. PACLITAXEL [Concomitant]
  3. ZOMETA [Concomitant]

REACTIONS (1)
  - Exposure during pregnancy [Unknown]
